FAERS Safety Report 6546726-5 (Version None)
Quarter: 2010Q1

REPORT INFORMATION
  Report Type: 
  Country: None (occurrence: None)
  Receive Date: 20100122
  Receipt Date: 20100115
  Transmission Date: 20100710
  Serious: Yes (Hospitalization)
  Sender: FDA-Public Use
  Company Number: JP-ELI_LILLY_AND_COMPANY-JP201001003763

PATIENT
  Age: 46 Year
  Sex: Male

DRUGS (3)
  1. ALIMTA [Suspect]
     Indication: NON-SMALL CELL LUNG CANCER
     Dosage: 500 MG/M2, OTHER
     Route: 042
     Dates: start: 20100101
  2. CARBOPLATIN [Concomitant]
     Indication: NON-SMALL CELL LUNG CANCER
     Route: 042
     Dates: start: 20100101
  3. AVASTIN [Concomitant]
     Indication: NON-SMALL CELL LUNG CANCER
     Route: 042
     Dates: start: 20100101

REACTIONS (2)
  - DISSEMINATED INTRAVASCULAR COAGULATION [None]
  - PNEUMONITIS [None]
